FAERS Safety Report 13243920 (Version 1)
Quarter: 2017Q1

REPORT INFORMATION
  Report Type: Spontaneous
  Country: US (occurrence: US)
  Receive Date: 20170217
  Receipt Date: 20170217
  Transmission Date: 20170428
  Serious: No
  Sender: FDA-Public Use
  Company Number: US-BAUSCH-BL-2016-008230

PATIENT
  Age: 74 Year
  Sex: Male
  Weight: 70.82 kg

DRUGS (1)
  1. DILTIAZEM CD [Suspect]
     Active Substance: DILTIAZEM
     Indication: CARDIAC DISORDER
     Route: 048

REACTIONS (2)
  - Drug ineffective [Unknown]
  - Palpitations [Recovered/Resolved]
